FAERS Safety Report 8876742 (Version 3)
Quarter: 2013Q1

REPORT INFORMATION
  Report Type: Spontaneous
  Country: US (occurrence: US)
  Receive Date: 20121030
  Receipt Date: 20130213
  Transmission Date: 20140127
  Serious: Yes (Death, Other)
  Sender: FDA-Public Use
  Company Number: US-GILEAD-2012-0063731

PATIENT
  Sex: Male

DRUGS (4)
  1. LETAIRIS [Suspect]
     Indication: PULMONARY ARTERIAL HYPERTENSION
     Dosage: 5 MG, QD
     Route: 048
     Dates: start: 20121004
  2. ADCIRCA [Concomitant]
  3. COUMADIN                           /00014802/ [Suspect]
     Indication: CORONARY ARTERY DISEASE
  4. COUMADIN                           /00014802/ [Suspect]
     Indication: PULMONARY HYPERTENSION

REACTIONS (3)
  - Disease complication [Fatal]
  - Respiratory failure [Fatal]
  - Anaemia [Fatal]
